FAERS Safety Report 7334416-0 (Version None)
Quarter: 2011Q1

REPORT INFORMATION
  Report Type: 
  Country: None (occurrence: None)
  Receive Date: 20110307
  Receipt Date: 20110228
  Transmission Date: 20110831
  Serious: Yes (Other)
  Sender: FDA-Public Use
  Company Number: CO-SANOFI-AVENTIS-2011SA012959

PATIENT
  Age: 59 Year
  Sex: Male

DRUGS (4)
  1. CLEXANE [Suspect]
     Indication: ACUTE CORONARY SYNDROME
     Route: 065
  2. ACE INHIBITOR NOS [Concomitant]
     Indication: ACUTE CORONARY SYNDROME
  3. PLAVIX [Concomitant]
     Indication: ACUTE CORONARY SYNDROME
     Route: 048
  4. ASPIRIN [Concomitant]
     Indication: ACUTE CORONARY SYNDROME
     Route: 048

REACTIONS (3)
  - DRUG INEFFECTIVE [None]
  - CORONARY ARTERY STENOSIS [None]
  - THROMBOSIS IN DEVICE [None]
